FAERS Safety Report 24177970 (Version 1)
Quarter: 2024Q3

REPORT INFORMATION
  Report Type: Spontaneous
  Country: US (occurrence: US)
  Receive Date: 20240806
  Receipt Date: 20240806
  Transmission Date: 20241016
  Serious: Yes (Hospitalization, Other)
  Sender: INTRA-CELLULAR THERAPIES
  Company Number: US-INTRA-CELLULAR THERAPIES, INC.-2024ICT01200

PATIENT
  Sex: Male
  Weight: 97.522 kg

DRUGS (6)
  1. CAPLYTA [Suspect]
     Active Substance: LUMATEPERONE
     Indication: Bipolar disorder
     Dosage: 42 MG, 1X/DAY
     Dates: start: 202306
  2. SEROQUEL [Suspect]
     Active Substance: QUETIAPINE FUMARATE
     Dosage: 200 MG, 1X/DAY, IN AM
  3. SEROQUEL [Suspect]
     Active Substance: QUETIAPINE FUMARATE
     Dosage: 400 MG, 1X/DAY, IN HS
  4. LITHIUM [Suspect]
     Active Substance: LITHIUM
  5. OLANZAPINE [Suspect]
     Active Substance: OLANZAPINE
  6. AUVELITY [Concomitant]
     Active Substance: BUPROPION HYDROCHLORIDE\DEXTROMETHORPHAN HYDROBROMIDE

REACTIONS (9)
  - Feeling abnormal [Unknown]
  - Toxicity to various agents [Unknown]
  - Hypersomnia [Unknown]
  - Mania [Unknown]
  - Dissociation [Unknown]
  - Hypophagia [Unknown]
  - Sexual dysfunction [Unknown]
  - Memory impairment [Not Recovered/Not Resolved]
  - Weight increased [Unknown]
